FAERS Safety Report 6640087-9 (Version None)
Quarter: 2010Q1

REPORT INFORMATION
  Report Type: 
  Country: None (occurrence: None)
  Receive Date: 20100302
  Receipt Date: 20091110
  Transmission Date: 20100710
  Serious: No
  Sender: FDA-Public Use
  Company Number: 2009273834

PATIENT
  Age: 63 Year
  Sex: Female
  Weight: 116 kg

DRUGS (12)
  1. TOVIAZ [Suspect]
     Indication: INCONTINENCE
     Dosage: 4MG, 1X/DAY
     Dates: start: 20090910
  2. METFORMIN (GLUCOPHAGE) [Concomitant]
  3. GLIMEPIRIDE [Concomitant]
  4. ATENOLOL [Concomitant]
  5. SITAGLIPTIN [Concomitant]
  6. WELLBUTRIN [Concomitant]
  7. ADDERALL (AMFETAMINE ASPARTAATE, AMFETAMINE SULFATE, DEXAMFETAMINE SAC [Concomitant]
  8. EFFEXOR [Concomitant]
  9. ARICEPT [Concomitant]
  10. KLONOPIN [Concomitant]
  11. INSULIN [Concomitant]
  12. AMPHETAMINE SULFATE [Concomitant]

REACTIONS (2)
  - DIARRHOEA [None]
  - STRESS [None]
